FAERS Safety Report 14357079 (Version 3)
Quarter: 2019Q2

REPORT INFORMATION
  Report Type: Spontaneous
  Country: IT (occurrence: IT)
  Receive Date: 20180105
  Receipt Date: 20190618
  Transmission Date: 20190711
  Serious: Yes (Death, Other)
  Sender: FDA-Public Use
  Company Number: IT-MYLANLABS-2018M1000930

PATIENT
  Age: 72 Year
  Sex: Female

DRUGS (10)
  1. ZOVIRAX [Concomitant]
     Active Substance: ACYCLOVIR
     Indication: PRODUCT USED FOR UNKNOWN INDICATION
     Dosage: UNK
  2. LANSOPRAZOLE. [Concomitant]
     Active Substance: LANSOPRAZOLE
     Indication: PRODUCT USED FOR UNKNOWN INDICATION
     Dosage: UNK
     Route: 065
  3. SOLDESAM [Concomitant]
     Active Substance: DEXAMETHASONE
     Indication: PRODUCT USED FOR UNKNOWN INDICATION
     Dosage: 1 DOSAGE FORM
  4. LYRICA [Concomitant]
     Active Substance: PREGABALIN
     Indication: PRODUCT USED FOR UNKNOWN INDICATION
     Dosage: UNK
     Route: 065
  5. LEVOFLOXACIN. [Suspect]
     Active Substance: LEVOFLOXACIN
     Indication: PRODUCT USED FOR UNKNOWN INDICATION
     Dosage: UNK, QD, DOSE: 1UNK DOSE:1 UNIT(S)
     Route: 048
     Dates: start: 20170915, end: 20170920
  6. COUMADIN [Interacting]
     Active Substance: WARFARIN SODIUM
     Indication: ATRIAL FIBRILLATION
     Dosage: 1 DOSAGE FORM, PRN(DOSE: 1UNK DOSE:1 UNIT(S))
     Route: 048
     Dates: start: 20170101, end: 20170925
  7. ZOVIRAX [Concomitant]
     Active Substance: ACYCLOVIR
     Dosage: 1 DOSAGE FORM
     Route: 065
  8. LASIX [Concomitant]
     Active Substance: FUROSEMIDE
     Indication: PRODUCT USED FOR UNKNOWN INDICATION
     Dosage: UNK
     Route: 065
  9. LOSARTAN. [Concomitant]
     Active Substance: LOSARTAN
     Indication: PRODUCT USED FOR UNKNOWN INDICATION
     Dosage: 0.5 DOSAGE FORM
     Route: 065
  10. LENALIDOMIDE [Concomitant]
     Active Substance: LENALIDOMIDE
     Indication: PRODUCT USED FOR UNKNOWN INDICATION
     Dosage: UNK

REACTIONS (10)
  - Confusional state [Unknown]
  - Agitation [Unknown]
  - Hypovolaemic shock [Fatal]
  - Eye disorder [Unknown]
  - Bradycardia [Fatal]
  - Abdominal pain upper [Fatal]
  - Cardio-respiratory arrest [Fatal]
  - Labelled drug-drug interaction medication error [Unknown]
  - Haematemesis [Fatal]
  - Pallor [Fatal]

NARRATIVE: CASE EVENT DATE: 20170925
